FAERS Safety Report 15526032 (Version 6)
Quarter: 2019Q4

REPORT INFORMATION
  Report Type: Spontaneous
  Country: FI (occurrence: FI)
  Receive Date: 20181018
  Receipt Date: 20191112
  Transmission Date: 20200122
  Serious: Yes (Hospitalization)
  Sender: FDA-Public Use
  Company Number: FI-CELGENEUS-FIN-20180906991

PATIENT
  Age: 72 Year
  Sex: Male
  Weight: 60.8 kg

DRUGS (50)
  1. SOLU-CORTEF [Concomitant]
     Active Substance: HYDROCORTISONE SODIUM SUCCINATE
     Dosage: 100 MILLIGRAM
     Route: 041
     Dates: start: 20180910, end: 20180910
  2. PANACOD [Concomitant]
     Active Substance: ACETAMINOPHEN\CODEINE PHOSPHATE
     Indication: OROPHARYNGEAL PAIN
     Dosage: 500/30 MG
     Route: 048
     Dates: start: 20180211
  3. CAPHOSOL [Concomitant]
     Active Substance: CALCIUM CHLORIDE\SODIUM CHLORIDE\SODIUM PHOSPHATE, DIBASIC, ANHYDROUS\SODIUM PHOSPHATE, MONOBASIC, ANHYDROUS
     Indication: ORAL CANDIDIASIS
     Route: 048
     Dates: start: 20180405, end: 20181003
  4. MYKUNDEX [Concomitant]
     Indication: ORAL CANDIDIASIS
     Dosage: 3 MILLILITER
     Route: 048
     Dates: start: 20180809, end: 20180815
  5. ZOFRAN [Concomitant]
     Active Substance: ONDANSETRON HYDROCHLORIDE
     Indication: NAUSEA
     Route: 060
     Dates: start: 20180614
  6. PERUSLIOUS-K, BASIC SOLUTION-K INFUSIO [Concomitant]
     Indication: PROPHYLAXIS
     Route: 041
     Dates: start: 20180305, end: 20180305
  7. COCILLANA [Concomitant]
     Active Substance: COCILLANA
     Indication: COUGH
     Route: 048
     Dates: start: 20180601, end: 20190205
  8. OXYNORM [Concomitant]
     Active Substance: OXYCODONE HYDROCHLORIDE
     Indication: ORAL PAIN
     Route: 048
     Dates: start: 20180305, end: 20181003
  9. VALTREX [Concomitant]
     Active Substance: VALACYCLOVIR HYDROCHLORIDE
     Dosage: 1000 MILLIGRAM
     Route: 048
     Dates: start: 20180717
  10. HISTEC [Concomitant]
     Active Substance: CETIRIZINE HYDROCHLORIDE
     Indication: TRANSFUSION REACTION
     Dosage: 10 MILLIGRAM
     Route: 048
     Dates: start: 20180605, end: 20180605
  11. KALEORID [Concomitant]
     Active Substance: POTASSIUM CHLORIDE
     Dosage: 3000 MILLIGRAM
     Route: 048
     Dates: start: 20180305, end: 20180322
  12. KALEORID [Concomitant]
     Active Substance: POTASSIUM CHLORIDE
     Dosage: 1000 MILLIGRAM
     Route: 048
     Dates: start: 20190110
  13. TEMESTA [Concomitant]
     Indication: PROPHYLAXIS
     Route: 048
     Dates: start: 20180305
  14. NORMAL SALINE SOLUTION [Concomitant]
     Indication: PROPHYLAXIS
     Route: 065
     Dates: start: 20180304, end: 20180304
  15. VENTOLINE [Concomitant]
     Active Substance: ALBUTEROL
     Indication: CHRONIC OBSTRUCTIVE PULMONARY DISEASE
     Dosage: 400 MICROGRAM
     Route: 055
     Dates: start: 20180304
  16. KALEORID [Concomitant]
     Active Substance: POTASSIUM CHLORIDE
     Dosage: 2000 MILLIGRAM
     Route: 048
     Dates: start: 20181215, end: 20190109
  17. CAPRILON [Concomitant]
     Indication: MOUTH HAEMORRHAGE
     Route: 048
     Dates: start: 20181011
  18. NORMAL SALINE SOLUTION [Concomitant]
     Route: 065
     Dates: start: 20180306, end: 20180306
  19. LIDOCAINE. [Concomitant]
     Active Substance: LIDOCAINE
     Indication: ORAL PAIN
     Route: 048
     Dates: start: 20180211, end: 20181003
  20. PEGORION [Concomitant]
     Active Substance: POLYETHYLENE GLYCOL 4000
     Indication: CONSTIPATION
     Route: 048
     Dates: start: 20180409
  21. IMODIUM [Concomitant]
     Active Substance: LOPERAMIDE HYDROCHLORIDE
     Indication: DIARRHOEA
     Route: 048
     Dates: start: 20180405, end: 20181003
  22. HISTEC [Concomitant]
     Active Substance: CETIRIZINE HYDROCHLORIDE
     Route: 048
     Dates: start: 20180910, end: 20180910
  23. KALEORID [Concomitant]
     Active Substance: POTASSIUM CHLORIDE
     Dosage: 2250 MILLIGRAM
     Route: 048
     Dates: start: 20180222, end: 20180304
  24. NORMAL SALINE SOLUTION [Concomitant]
     Route: 065
     Dates: start: 20180308, end: 20180308
  25. PERUSLIOUS-K, BASIC SOLUTION-K INFUSIO [Concomitant]
     Route: 041
     Dates: start: 20180306, end: 20180306
  26. PANADOL FORTE [Concomitant]
     Indication: PNEUMONIA
     Route: 048
     Dates: start: 20180529, end: 20190205
  27. SERETIDE [Concomitant]
     Active Substance: FLUTICASONE PROPIONATE\SALMETEROL XINAFOATE
     Indication: ASTHMA
     Dosage: 50/250 UG
     Route: 055
     Dates: start: 20180304
  28. KALEORID [Concomitant]
     Active Substance: POTASSIUM CHLORIDE
     Dosage: 1500 MILLIGRAM
     Route: 048
     Dates: start: 20180323, end: 20180405
  29. KALEORID [Concomitant]
     Active Substance: POTASSIUM CHLORIDE
     Dosage: 1000 MILLIGRAM
     Route: 048
     Dates: start: 20181008, end: 20181214
  30. EMCONCOR COMP [Concomitant]
     Indication: HYPERTENSION
     Dosage: 2.5/6.225 MG
     Route: 048
     Dates: start: 20181119
  31. ATRODUAL [Concomitant]
     Indication: CHRONIC OBSTRUCTIVE PULMONARY DISEASE
     Dosage: 6 MILLILITER
     Route: 055
     Dates: start: 20180602, end: 20180608
  32. COCILLANA [Concomitant]
     Active Substance: COCILLANA
     Indication: PNEUMONIA
  33. LOSARTAN. [Concomitant]
     Active Substance: LOSARTAN
     Indication: HYPERTENSION
     Dosage: 50 MILLIGRAM
     Route: 048
     Dates: start: 20181011, end: 20181111
  34. LOSARTAN. [Concomitant]
     Active Substance: LOSARTAN
     Dosage: 100 MILLIGRAM
     Route: 048
     Dates: start: 20181112
  35. AZACITIDINE. [Suspect]
     Active Substance: AZACITIDINE
     Indication: ACUTE MYELOID LEUKAEMIA
     Dosage: 75 MILLIGRAM/SQ. METER
     Route: 058
     Dates: start: 20180305
  36. VENETOCLAX. [Concomitant]
     Active Substance: VENETOCLAX
     Indication: ACUTE MYELOID LEUKAEMIA
     Route: 048
     Dates: start: 20180305
  37. VALTREX [Concomitant]
     Active Substance: VALACYCLOVIR HYDROCHLORIDE
     Dosage: 2000 MILLIGRAM
     Route: 048
     Dates: start: 20180712, end: 20180716
  38. APOLAR [Concomitant]
     Indication: ERYTHEMA
     Route: 061
     Dates: start: 20180309, end: 201905
  39. NORMAL SALINE SOLUTION [Concomitant]
     Route: 065
     Dates: start: 20180305, end: 20180305
  40. PANACOD [Concomitant]
     Active Substance: ACETAMINOPHEN\CODEINE PHOSPHATE
     Indication: ORAL PAIN
  41. VALTREX [Concomitant]
     Active Substance: VALACYCLOVIR HYDROCHLORIDE
     Indication: FEBRILE NEUTROPENIA
     Dosage: 1000 MILLIGRAM
     Route: 048
     Dates: start: 20180323, end: 20180711
  42. CORSODYL [Concomitant]
     Active Substance: CHLORHEXIDINE GLUCONATE
     Indication: ORAL PAIN
     Route: 048
     Dates: start: 20180405, end: 20181003
  43. ALLOPURINOL. [Concomitant]
     Active Substance: ALLOPURINOL
     Indication: PROPHYLAXIS
     Dosage: 300 MILLIGRAM
     Route: 048
     Dates: start: 20180217, end: 20180316
  44. LACTATED RINGERS SOLUTION [Concomitant]
     Active Substance: CALCIUM CHLORIDE\POTASSIUM CHLORIDE\SODIUM CHLORIDE\SODIUM LACTATE
     Indication: PROPHYLAXIS
     Route: 041
     Dates: start: 20180304, end: 20180304
  45. SOLU-CORTEF [Concomitant]
     Active Substance: HYDROCORTISONE SODIUM SUCCINATE
     Indication: TRANSFUSION REACTION
     Dosage: 100 MILLIGRAM
     Route: 041
     Dates: start: 20180605, end: 20180605
  46. VALTREX [Concomitant]
     Active Substance: VALACYCLOVIR HYDROCHLORIDE
     Indication: ANTIVIRAL PROPHYLAXIS
     Dosage: 500 MILLIGRAM
     Route: 048
     Dates: start: 20180305, end: 20180322
  47. KALEORID [Concomitant]
     Active Substance: POTASSIUM CHLORIDE
     Indication: HYPOKALAEMIA
     Dosage: 1000 MILLIGRAM
     Route: 048
     Dates: start: 20180221, end: 20180221
  48. LACTATED RINGERS SOLUTION [Concomitant]
     Active Substance: CALCIUM CHLORIDE\POTASSIUM CHLORIDE\SODIUM CHLORIDE\SODIUM LACTATE
     Route: 041
     Dates: start: 20180306, end: 20180306
  49. PERUSLIOUS-K, BASIC SOLUTION-K INFUSIO [Concomitant]
     Route: 041
     Dates: start: 20180308, end: 20180308
  50. ATRODUAL [Concomitant]
     Indication: PNEUMONIA
     Route: 055
     Dates: start: 20180211, end: 20181003

REACTIONS (2)
  - Pneumonia [Recovered/Resolved]
  - C-reactive protein increased [Recovered/Resolved]

NARRATIVE: CASE EVENT DATE: 20180910
